FAERS Safety Report 23189821 (Version 2)
Quarter: 2023Q4

REPORT INFORMATION
  Report Type: Spontaneous
  Country: RU (occurrence: RU)
  Receive Date: 20231116
  Receipt Date: 20231221
  Transmission Date: 20240110
  Serious: Yes (Death, Other)
  Sender: FDA-Public Use
  Company Number: RU-ABBVIE-5495585

PATIENT
  Sex: Male
  Weight: 69 kg

DRUGS (4)
  1. ZEMPLAR [Suspect]
     Active Substance: PARICALCITOL
     Indication: Product used for unknown indication
     Dosage: TIME INTERVAL: 0.33333333 WEEKS: LAST ADMIN DATE: 2023?2 CAPSULES EVERY OTHER DAY?FORM STRENGTH: ...
     Route: 048
     Dates: start: 20230901
  2. ZEMPLAR [Suspect]
     Active Substance: PARICALCITOL
     Indication: Product used for unknown indication
     Dosage: TIME INTERVAL: 0.33333333 WEEKS: FORM STRENGTH: 5 MICROGRAM
     Route: 065
     Dates: start: 20221223
  3. Likferr [Concomitant]
     Indication: Anaemia
     Route: 065
  4. EPOETIN BETA [Concomitant]
     Active Substance: ERYTHROPOIETIN
     Indication: Anaemia
     Route: 065

REACTIONS (3)
  - Endocarditis [Fatal]
  - Sepsis [Fatal]
  - Hemiplegia [Unknown]
